FAERS Safety Report 20937477 (Version 1)
Quarter: 2022Q2

REPORT INFORMATION
  Report Type: Spontaneous
  Country: US (occurrence: None)
  Receive Date: 20220608
  Receipt Date: 20220608
  Transmission Date: 20220721
  Serious: Yes (Hospitalization)
  Sender: FDA-Public Use
  Company Number: None

PATIENT
  Age: 80 Year
  Sex: Male

DRUGS (1)
  1. IMATINIB MESYLATE [Suspect]
     Active Substance: IMATINIB MESYLATE
     Indication: Chronic myeloid leukaemia
     Dosage: 400MG ONCE DAILY ORAL
     Route: 048
     Dates: start: 20170223

REACTIONS (2)
  - Fluid retention [None]
  - Renal disorder [None]

NARRATIVE: CASE EVENT DATE: 20220516
